FAERS Safety Report 20516008 (Version 1)
Quarter: 2022Q1

REPORT INFORMATION
  Report Type: Other
  Country: DE (occurrence: None)
  Receive Date: 20220225
  Receipt Date: 20220225
  Transmission Date: 20220423
  Serious: No
  Sender: FDA-Public Use
  Company Number: DE-ROCHE-2998800

PATIENT
  Sex: Female

DRUGS (10)
  1. OCREVUS [Suspect]
     Active Substance: OCRELIZUMAB
     Indication: Relapsing-remitting multiple sclerosis
     Route: 042
     Dates: start: 20211119
  2. IBUPROFEN [Concomitant]
     Active Substance: IBUPROFEN
  3. CORTISONE [Concomitant]
     Active Substance: CORTISONE
  4. TORSEMIDE [Concomitant]
     Active Substance: TORSEMIDE
  5. AMLODIPINE [Concomitant]
     Active Substance: AMLODIPINE BESYLATE
  6. CANDESARTAN [Concomitant]
     Active Substance: CANDESARTAN
  7. BISOPROLOL [Concomitant]
     Active Substance: BISOPROLOL
  8. LEVOTHYROXINE [Concomitant]
     Active Substance: LEVOTHYROXINE
  9. VITAMIN D3 [Concomitant]
     Active Substance: CHOLECALCIFEROL
  10. AMITRIPTYLINE [Concomitant]
     Active Substance: AMITRIPTYLINE

REACTIONS (5)
  - Headache [Recovered/Resolved]
  - Burning sensation [Recovered/Resolved]
  - Hyperaesthesia [Recovered/Resolved]
  - Herpes zoster [Recovered/Resolved]
  - Eye swelling [Recovered/Resolved]

NARRATIVE: CASE EVENT DATE: 20211119
